FAERS Safety Report 4814700-2 (Version None)
Quarter: 2005Q4

REPORT INFORMATION
  Report Type: 
  Country: None (occurrence: None)
  Receive Date: 20051028
  Receipt Date: 20051017
  Transmission Date: 20060501
  Serious: Yes (Other)
  Sender: FDA-Public Use
  Company Number: 2005AP05394

PATIENT

DRUGS (10)
  1. ATENOLOL [Suspect]
     Indication: BLOOD PRESSURE ABNORMAL
     Route: 048
  2. CANDESARTAN [Interacting]
     Indication: BLOOD PRESSURE ABNORMAL
     Route: 048
  3. AMLODIPINE [Interacting]
     Indication: BLOOD PRESSURE ABNORMAL
  4. AROTINOLOL [Interacting]
     Indication: BLOOD PRESSURE INCREASED
  5. CILNIDIPINE [Suspect]
     Indication: BLOOD PRESSURE INCREASED
  6. DOXAZOSIN [Suspect]
     Indication: BLOOD PRESSURE INCREASED
  7. NIFEDIPINE [Suspect]
     Indication: BLOOD PRESSURE INCREASED
  8. RIFAMPICIN [Suspect]
     Indication: TUBERCULOSIS
  9. TEMOCAPRIL [Suspect]
     Indication: BLOOD PRESSURE INCREASED
  10. URAPIDIL [Suspect]
     Indication: BLOOD PRESSURE ABNORMAL

REACTIONS (3)
  - BLOOD PRESSURE INCREASED [None]
  - DIALYSIS [None]
  - DRUG INTERACTION [None]
